FAERS Safety Report 7869295-6 (Version None)
Quarter: 2011Q4

REPORT INFORMATION
  Report Type: 
  Country: None (occurrence: None)
  Receive Date: 20111028
  Receipt Date: 20111028
  Transmission Date: 20120403
  Serious: Yes (Other)
  Sender: FDA-Public Use
  Company Number: None

PATIENT
  Age: 44 Year
  Sex: Male

DRUGS (1)
  1. VENLAFAXINE HCL EXTENDED-RELEASE [Suspect]
     Indication: POST-TRAUMATIC STRESS DISORDER
     Dosage: VENLAFAXINE ER 150 MG TWICE DAILY PO
     Route: 048
     Dates: start: 20110801, end: 20111001

REACTIONS (1)
  - HEADACHE [None]
